FAERS Safety Report 6657785-3 (Version None)
Quarter: 2010Q1

REPORT INFORMATION
  Report Type: 
  Country: None (occurrence: None)
  Receive Date: 20100330
  Receipt Date: 20100319
  Transmission Date: 20100710
  Serious: Yes (Hospitalization)
  Sender: FDA-Public Use
  Company Number: US-ROCHE-659625

PATIENT
  Age: 69 Year
  Sex: Male
  Weight: 80.4 kg

DRUGS (17)
  1. BEVACIZUMAB [Suspect]
     Indication: RENAL CELL CARCINOMA
     Dosage: ON DAY1 AND DAY 15 OVER 30-90 MINS.  LAST DOSE: 10 AUG 2009, CYCLE 4, DAY1, HELD
     Route: 042
     Dates: start: 20090520
  2. BEVACIZUMAB [Suspect]
     Dosage: RESUMED, ON DAY1 AND DAY 15 OVER 30-90 MINS.
     Route: 042
     Dates: start: 20090824
  3. TEMSIROLIMUS [Suspect]
     Indication: RENAL CELL CARCINOMA
     Dosage: OVER 30MINS, ON DAY1,8,15 AND 22 EVERY 28DAYS, LAST DOSE: 10 AUG 2009, CYCLE 4, DAY1, HELD
     Route: 042
     Dates: start: 20090520
  4. TEMSIROLIMUS [Suspect]
     Dosage: RESUMED WITH REDUCED DOSE, ON DAY1,8,15 AND 22 EVERY 28DAYS.
     Route: 042
     Dates: start: 20090824
  5. PROCHLORPERAZINE [Concomitant]
  6. VALACYCLOVIR [Concomitant]
  7. LOORTAN [Concomitant]
  8. HYDROCHLORTHIAZID [Concomitant]
  9. ALEVE (CAPLET) [Concomitant]
  10. ASPIRIN [Concomitant]
  11. METOPROLOL TARTRATE [Concomitant]
  12. AMLODIPINE [Concomitant]
  13. OMEPRAZOLE [Concomitant]
  14. PERCOCET [Concomitant]
  15. IBUPROFEN [Concomitant]
  16. BACLOFEN [Concomitant]
  17. NEURONTIN [Concomitant]

REACTIONS (9)
  - ABDOMINAL DISCOMFORT [None]
  - ANAEMIA [None]
  - ASTHENIA [None]
  - COUGH [None]
  - DECREASED APPETITE [None]
  - DEHYDRATION [None]
  - EPISTAXIS [None]
  - HAEMOGLOBIN [None]
  - NAUSEA [None]
